FAERS Safety Report 7423838-5 (Version None)
Quarter: 2011Q2

REPORT INFORMATION
  Report Type: 
  Country: None (occurrence: None)
  Receive Date: 20110419
  Receipt Date: 20110410
  Transmission Date: 20111010
  Serious: Yes (Hospitalization)
  Sender: FDA-Public Use
  Company Number: PHHY2011BH29255

PATIENT
  Age: 37 Year
  Sex: Female

DRUGS (4)
  1. TASIGNA [Suspect]
     Dosage: 800 MG, PER DAY
     Route: 048
     Dates: start: 20101101
  2. TASIGNA [Suspect]
     Indication: CHRONIC MYELOID LEUKAEMIA
     Dosage: 600 MG, PER DAY
     Route: 048
  3. TASIGNA [Suspect]
     Dosage: 400 MG, PER DAY
     Route: 048
  4. ANTIHISTAMINICS [Concomitant]

REACTIONS (6)
  - SWELLING [None]
  - ANAPHYLACTIC REACTION [None]
  - URTICARIA [None]
  - ERYTHEMA [None]
  - TENDERNESS [None]
  - SKIN LESION [None]
